FAERS Safety Report 10502179 (Version 2)
Quarter: 2014Q4

REPORT INFORMATION
  Report Type: Spontaneous
  Country: JP (occurrence: JP)
  Receive Date: 20141007
  Receipt Date: 20141120
  Transmission Date: 20150528
  Serious: Yes (Hospitalization, Disabling, Other)
  Sender: FDA-Public Use
  Company Number: JP-PFIZER INC-2014270701

PATIENT
  Age: 60 Year
  Sex: Male
  Weight: 88 kg

DRUGS (4)
  1. THYRADIN [Concomitant]
     Active Substance: LEVOTHYROXINE
     Indication: HYPOTHYROIDISM
     Dosage: 50 MG, 1X/DAY
     Route: 048
     Dates: start: 201012
  2. INLYTA [Suspect]
     Active Substance: AXITINIB
     Indication: METASTATIC RENAL CELL CARCINOMA
     Dosage: 10 MG, DAILY
     Route: 048
     Dates: start: 20131212, end: 20140921
  3. TAGAMET [Concomitant]
     Active Substance: CIMETIDINE
     Indication: GASTRIC ULCER
     Dosage: 200 MG, 2X/DAY
     Route: 048
     Dates: start: 201012
  4. AMLODIPINE [Concomitant]
     Active Substance: AMLODIPINE BESYLATE
     Indication: HYPERTENSION
     Dosage: 5 MG, 1X/DAY
     Route: 048
     Dates: start: 201012

REACTIONS (1)
  - Ophthalmoplegia [Recovered/Resolved with Sequelae]

NARRATIVE: CASE EVENT DATE: 20140921
